FAERS Safety Report 24966607 (Version 1)
Quarter: 2025Q1

REPORT INFORMATION
  Report Type: Report from Study
  Country: GB (occurrence: GB)
  Receive Date: 20250213
  Receipt Date: 20250213
  Transmission Date: 20250408
  Serious: Yes (Death)
  Sender: JOHNSON AND JOHNSON
  Company Number: GB-BAYER-2025A020779

PATIENT
  Age: 78 Year
  Sex: Male

DRUGS (1)
  1. ILOPROST [Suspect]
     Active Substance: ILOPROST
     Indication: Pulmonary hypertension
     Route: 055
     Dates: start: 20230320, end: 20250205

REACTIONS (1)
  - Death [Fatal]

NARRATIVE: CASE EVENT DATE: 20250205
